FAERS Safety Report 7399588-0 (Version None)
Quarter: 2011Q2

REPORT INFORMATION
  Report Type: 
  Country: None (occurrence: None)
  Receive Date: 20110407
  Receipt Date: 20101011
  Transmission Date: 20111010
  Serious: Yes (Hospitalization, Other)
  Sender: FDA-Public Use
  Company Number: US-BAYER-201023169NA

PATIENT
  Sex: Female
  Weight: 47.619 kg

DRUGS (14)
  1. YASMIN [Suspect]
     Indication: PRODUCT USED FOR UNKNOWN INDICATION
     Dosage: UNK UNK, UNK
     Route: 048
     Dates: start: 20031001, end: 20031101
  2. CEPHALEXIN [Concomitant]
  3. FAMVIR [Concomitant]
  4. HYDROCODONE [Concomitant]
  5. PHENAZOPYRIDINE HCL TAB [Concomitant]
  6. FLUOXETINE [Concomitant]
  7. TRAZODONE [Concomitant]
  8. ELIDEL [Concomitant]
  9. LEVAQUIN [Concomitant]
  10. STRATTERA [Concomitant]
  11. LORAZEPAM [Concomitant]
  12. PAXIL [Concomitant]
  13. YAZ [Suspect]
     Indication: PRODUCT USED FOR UNKNOWN INDICATION
     Dosage: UNK UNK, UNK
     Route: 048
     Dates: start: 20031001
  14. OCELLA [Suspect]
     Indication: PRODUCT USED FOR UNKNOWN INDICATION
     Route: 048
     Dates: start: 20031001

REACTIONS (5)
  - DEEP VEIN THROMBOSIS [None]
  - MYOCARDIAL INFARCTION [None]
  - PULMONARY EMBOLISM [None]
  - CHOLECYSTITIS CHRONIC [None]
  - CEREBROVASCULAR ACCIDENT [None]
